FAERS Safety Report 14467260 (Version 1)
Quarter: 2018Q1

REPORT INFORMATION
  Report Type: Spontaneous
  Country: US (occurrence: US)
  Receive Date: 20180130
  Receipt Date: 20180130
  Transmission Date: 20180509
  Serious: Yes (Other)
  Sender: FDA-Public Use
  Company Number: None

PATIENT
  Age: 36 Year
  Sex: Female
  Weight: 83.01 kg

DRUGS (1)
  1. GLATIRAMER 20MG/ML [Suspect]
     Active Substance: GLATIRAMER ACETATE
     Indication: MULTIPLE SCLEROSIS
     Dosage: EVERY MON/WED/THURS
     Dates: start: 20171115, end: 20180115

REACTIONS (5)
  - Erythema [None]
  - Pruritus [None]
  - Skin swelling [None]
  - Mouth swelling [None]
  - Urticaria [None]

NARRATIVE: CASE EVENT DATE: 20171115
